FAERS Safety Report 14634685 (Version 1)
Quarter: 2018Q1

REPORT INFORMATION
  Report Type: Spontaneous
  Country: US (occurrence: US)
  Receive Date: 20180313
  Receipt Date: 20180313
  Transmission Date: 20180509
  Serious: Yes (Hospitalization)
  Sender: FDA-Public Use
  Company Number: None

PATIENT
  Age: 60 Year
  Sex: Female

DRUGS (1)
  1. CAPECITABINE  500 MG WESTWARD [Suspect]
     Active Substance: CAPECITABINE
     Indication: ANAEMIA
     Route: 048
     Dates: start: 20171102, end: 20180228

REACTIONS (3)
  - Diarrhoea [None]
  - Dehydration [None]
  - Vomiting [None]

NARRATIVE: CASE EVENT DATE: 20180228
